FAERS Safety Report 21385413 (Version 1)
Quarter: 2022Q3

REPORT INFORMATION
  Report Type: Spontaneous
  Country: US (occurrence: None)
  Receive Date: 20220926
  Receipt Date: 20220926
  Transmission Date: 20221027
  Serious: Yes (Life-Threatening, Hospitalization, Other)
  Sender: FDA-Public Use
  Company Number: None

PATIENT
  Age: 50 Year
  Sex: Female
  Weight: 77.11 kg

DRUGS (3)
  1. BACLOFEN [Suspect]
     Active Substance: BACLOFEN
  2. FENTANYL [Suspect]
     Active Substance: FENTANYL
  3. LEVOTHYROXINE [Concomitant]
     Active Substance: LEVOTHYROXINE

REACTIONS (6)
  - Device defective [None]
  - Recalled product administered [None]
  - Seizure [None]
  - Near death experience [None]
  - Overdose [None]
  - Affective disorder [None]

NARRATIVE: CASE EVENT DATE: 20220615
